FAERS Safety Report 18120015 (Version 1)
Quarter: 2020Q3

REPORT INFORMATION
  Report Type: Report from Study
  Country: US (occurrence: US)
  Receive Date: 20200806
  Receipt Date: 20200806
  Transmission Date: 20201103
  Serious: Yes (Other)
  Sender: FDA-Public Use
  Company Number: US-AMGEN-USANI2020123595

PATIENT
  Age: 58 Year
  Sex: Female
  Weight: 90.55 kg

DRUGS (13)
  1. TRASTUZUMAB. [Concomitant]
     Active Substance: TRASTUZUMAB
     Dosage: 540?716 MILLIGRAM
     Route: 042
     Dates: start: 20200319, end: 20200521
  2. DEXAMETHASONE. [Concomitant]
     Active Substance: DEXAMETHASONE
     Dosage: 4?10 MILLIGRAM
     Route: 042
     Dates: start: 20200409, end: 20200611
  3. BENADRYL [Concomitant]
     Active Substance: DIPHENHYDRAMINE HYDROCHLORIDE
     Dosage: 50 MILLIGRAM
     Route: 042
     Dates: start: 20200319, end: 20200521
  4. PEGFILGRASTIM [Suspect]
     Active Substance: PEGFILGRASTIM
     Indication: FEBRILE NEUTROPENIA
     Dosage: 6 MILLIGRAM
     Route: 058
     Dates: start: 20200319
  5. PERTUZUMAB. [Concomitant]
     Active Substance: PERTUZUMAB
     Dosage: 420?840 MILLIGRAM
     Route: 042
     Dates: start: 20200319, end: 20200521
  6. ALOXI [Concomitant]
     Active Substance: PALONOSETRON HYDROCHLORIDE
     Dosage: 250 MICROGRAM
     Route: 042
     Dates: start: 20200409, end: 20200521
  7. EMEND [Concomitant]
     Active Substance: APREPITANT
     Dosage: 150 MILLIGRAM
     Route: 042
     Dates: start: 20200409, end: 20200521
  8. PROCHLORPERAZINE MALEATE. [Concomitant]
     Active Substance: PROCHLORPERAZINE MALEATE
     Dosage: 10 MILLIGRAM
     Route: 048
     Dates: start: 20200319, end: 20200611
  9. CARBOPLATIN. [Concomitant]
     Active Substance: CARBOPLATIN
     Dosage: 500?800 MILLIGRAM
     Route: 042
     Dates: start: 20200319, end: 20200521
  10. DILANTIN [Concomitant]
     Active Substance: PHENYTOIN
     Dosage: 100 MILLIGRAM
     Route: 048
     Dates: start: 20160209, end: 20200611
  11. PEPCID [Concomitant]
     Active Substance: FAMOTIDINE
     Dosage: 20 MILLIGRAM
     Route: 042
     Dates: start: 20200409, end: 20200521
  12. DOCETAXEL. [Concomitant]
     Active Substance: DOCETAXEL
     Dosage: 152 MILLIGRAM
     Route: 042
     Dates: start: 20200319, end: 20200521
  13. MYSOLINE [Concomitant]
     Active Substance: PRIMIDONE
     Dosage: 125 MILLIGRAM
     Route: 048
     Dates: start: 20160209, end: 20200611

REACTIONS (2)
  - Myalgia [Recovered/Resolved]
  - Thrombocytopenia [Recovered/Resolved]

NARRATIVE: CASE EVENT DATE: 20200430
